FAERS Safety Report 5019265-0 (Version None)
Quarter: 2006Q2

REPORT INFORMATION
  Report Type: 
  Country: None (occurrence: None)
  Receive Date: 20060531
  Receipt Date: 20060523
  Transmission Date: 20061013
  Serious: Yes (Other)
  Sender: FDA-Public Use
  Company Number: 2006067663

PATIENT
  Age: 46 Year
  Sex: Female

DRUGS (5)
  1. SULFASALAZINE [Suspect]
     Indication: CROHN'S DISEASE
  2. OMEPRAZOLE [Concomitant]
  3. LUTENYL (NOMEGESTROL ACETATE) [Concomitant]
  4. MYOLASTIN (TETRAZEPAM) [Concomitant]
  5. PROPOFAN (CAFFEINE, CARBASALATE CALCIUM CHLORPHENAMINE MALEATE, DEXTRO [Concomitant]

REACTIONS (1)
  - SYSTEMIC LUPUS ERYTHEMATOSUS [None]
